FAERS Safety Report 4398763-7 (Version None)
Quarter: 2004Q3

REPORT INFORMATION
  Report Type: 
  Country: None (occurrence: None)
  Receive Date: 20040715
  Receipt Date: 20040621
  Transmission Date: 20050211
  Serious: Yes (Life-Threatening, Hospitalization)
  Sender: FDA-Public Use
  Company Number: IT-AMGEN-UK080795

PATIENT
  Sex: Male

DRUGS (13)
  1. DARBEPOETIN ALFA [Suspect]
     Indication: ANAEMIA OF MALIGNANT DISEASE
     Route: 058
     Dates: start: 20040601
  2. NEUPOGEN [Suspect]
     Route: 065
     Dates: start: 20040609
  3. SPORANOX [Concomitant]
     Route: 065
  4. INSULIN [Concomitant]
  5. ENALAPRIL MALEATE [Concomitant]
  6. OMEPRAZOLE [Concomitant]
  7. CIPROFLOXACIN [Concomitant]
  8. ADRIAMYCIN PFS [Concomitant]
     Dates: start: 20040602
  9. ETOPOSIDE [Concomitant]
     Dates: start: 20040602
  10. CYCLOPHOSPHAMIDE [Concomitant]
     Dates: start: 20040602
  11. PROCARBAZINE [Concomitant]
     Dates: start: 20040602
  12. PREDNISONE [Concomitant]
     Dates: start: 20040602
  13. BLEOMYCIN [Concomitant]
     Dates: start: 20040609

REACTIONS (3)
  - HYPERCOAGULATION [None]
  - PULMONARY EMBOLISM [None]
  - PYREXIA [None]
